FAERS Safety Report 17322155 (Version 1)
Quarter: 2020Q1

REPORT INFORMATION
  Report Type: Spontaneous
  Country: US (occurrence: US)
  Receive Date: 20200127
  Receipt Date: 20200127
  Transmission Date: 20200409
  Serious: No
  Sender: FDA-Public Use
  Company Number: US-ACORDA-ACO_159513_2019

PATIENT
  Age: 69 Year
  Sex: Female
  Weight: 53.97 kg

DRUGS (6)
  1. 4-AMINOPYRIDINE [Suspect]
     Active Substance: DALFAMPRIDINE
     Indication: GAIT DISTURBANCE
     Dosage: 4 MILLIGRAM, BID
     Route: 048
  2. 4-AMINOPYRIDINE [Suspect]
     Active Substance: DALFAMPRIDINE
     Dosage: 7.5 MILLIGRAM, BID
     Route: 048
     Dates: end: 20190824
  3. AMPYRA [Suspect]
     Active Substance: DALFAMPRIDINE
     Indication: MULTIPLE SCLEROSIS
     Dosage: 1 DOSAGE FORM, BID
     Route: 048
     Dates: start: 20190614, end: 20190614
  4. AMPYRA [Suspect]
     Active Substance: DALFAMPRIDINE
     Indication: GAIT DISTURBANCE
  5. 4-AMINOPYRIDINE [Suspect]
     Active Substance: DALFAMPRIDINE
     Indication: MULTIPLE SCLEROSIS
     Dosage: 2.5 MILLIGRAM, BID
     Route: 048
     Dates: start: 2019
  6. 4-AMINOPYRIDINE [Suspect]
     Active Substance: DALFAMPRIDINE
     Dosage: 2.5 MILLIGRAM, BID
     Route: 048
     Dates: end: 20190909

REACTIONS (13)
  - Therapeutic response unexpected [Unknown]
  - Dizziness [Recovered/Resolved]
  - Gait disturbance [Recovered/Resolved]
  - Mobility decreased [Recovered/Resolved]
  - Limb discomfort [Recovered/Resolved]
  - Paraesthesia [Recovered/Resolved]
  - Product dose omission [Unknown]
  - Malaise [Recovered/Resolved]
  - Dysstasia [Recovered/Resolved]
  - Muscle tightness [Recovered/Resolved]
  - Stress [Recovered/Resolved]
  - Paraesthesia [Recovered/Resolved]
  - Disorientation [Recovered/Resolved]

NARRATIVE: CASE EVENT DATE: 20190614
